FAERS Safety Report 8564861-7 (Version None)
Quarter: 2012Q3

REPORT INFORMATION
  Report Type: 
  Country: None (occurrence: None)
  Receive Date: 20120803
  Receipt Date: 20120419
  Transmission Date: 20120928
  Serious: No
  Sender: FDA-Public Use
  Company Number: US-GLAXOSMITHKLINE-A0974366A

PATIENT
  Age: 37 Year
  Sex: Female
  Weight: 61.4 kg

DRUGS (2)
  1. LOPID [Concomitant]
  2. HORIZANT [Suspect]
     Indication: RESTLESS LEGS SYNDROME
     Dosage: 600MG PER DAY
     Route: 048
     Dates: start: 20120228, end: 20120323

REACTIONS (3)
  - GLOSSODYNIA [None]
  - DRY MOUTH [None]
  - DRUG INEFFECTIVE [None]
